FAERS Safety Report 9315656 (Version 1)
Quarter: 2013Q2

REPORT INFORMATION
  Report Type: Spontaneous
  Country: US (occurrence: US)
  Receive Date: 20130529
  Receipt Date: 20130529
  Transmission Date: 20140414
  Serious: Yes (Other)
  Sender: FDA-Public Use
  Company Number: CHPA2013US008988

PATIENT
  Sex: 0

DRUGS (1)
  1. EX-LAX UNKNOWN [Suspect]
     Dosage: UNK, ALMOST DAILY
     Route: 048

REACTIONS (2)
  - Ventricular extrasystoles [Unknown]
  - Heart rate decreased [Unknown]
